FAERS Safety Report 17147394 (Version 1)
Quarter: 2019Q4

REPORT INFORMATION
  Report Type: Spontaneous
  Country: US (occurrence: US)
  Receive Date: 20191212
  Receipt Date: 20191212
  Transmission Date: 20200122
  Serious: No
  Sender: FDA-Public Use
  Company Number: US-BAYER-2019-224421

PATIENT
  Age: 68 Year
  Sex: Male

DRUGS (2)
  1. MIRALAX [Suspect]
     Active Substance: POLYETHYLENE GLYCOL 3350
     Indication: CONSTIPATION PROPHYLAXIS
     Dosage: 0.5 DF, QD
     Route: 048
     Dates: start: 201906
  2. MIRALAX [Suspect]
     Active Substance: POLYETHYLENE GLYCOL 3350
     Indication: CONSTIPATION PROPHYLAXIS
     Dosage: 1 DF, QD
     Route: 048
     Dates: start: 201812, end: 201906

REACTIONS (3)
  - Off label use [Unknown]
  - Product taste abnormal [None]
  - Product use in unapproved indication [Unknown]

NARRATIVE: CASE EVENT DATE: 2019
